FAERS Safety Report 5661825-8 (Version None)
Quarter: 2008Q1

REPORT INFORMATION
  Report Type: 
  Country: None (occurrence: None)
  Receive Date: 20080312
  Receipt Date: 20080304
  Transmission Date: 20080703
  Serious: Yes (Other)
  Sender: FDA-Public Use
  Company Number: JP-MERCK-0802USA06341

PATIENT
  Age: 63 Year
  Sex: Male

DRUGS (11)
  1. DECADRON [Suspect]
     Indication: MULTIPLE MYELOMA
     Route: 048
  2. DECADRON [Suspect]
     Route: 048
     Dates: start: 20050501
  3. THALIDOMIDE [Suspect]
     Indication: MULTIPLE MYELOMA
     Route: 065
     Dates: start: 20050501
  4. [THERAPY UNSPECIFIED] [Concomitant]
     Indication: MULTIPLE MYELOMA
     Route: 042
  5. ADRIACIN [Concomitant]
     Indication: MULTIPLE MYELOMA
     Route: 042
  6. CYMERIN [Concomitant]
     Indication: MULTIPLE MYELOMA
     Route: 041
     Dates: start: 20040501
  7. FILDESIN [Concomitant]
     Indication: MULTIPLE MYELOMA
     Route: 042
     Dates: start: 20040501
  8. ALKERAN [Concomitant]
     Indication: MULTIPLE MYELOMA
     Route: 065
     Dates: start: 20040501
  9. PREDONINE [Concomitant]
     Indication: MULTIPLE MYELOMA
     Route: 065
     Dates: start: 20040501
  10. VELCADE [Concomitant]
     Indication: MULTIPLE MYELOMA
     Route: 042
     Dates: start: 20070315
  11. VELCADE [Concomitant]
     Route: 042
     Dates: start: 20070315

REACTIONS (3)
  - BLOOD COUNT ABNORMAL [None]
  - MULTIPLE MYELOMA [None]
  - NERVE INJURY [None]
